FAERS Safety Report 21095095 (Version 1)
Quarter: 2022Q3

REPORT INFORMATION
  Report Type: Spontaneous
  Country: US (occurrence: None)
  Receive Date: 20220716
  Receipt Date: 20220716
  Transmission Date: 20221026
  Serious: Yes (Hospitalization, Disabling)
  Sender: FDA-Public Use
  Company Number: None

PATIENT
  Age: 28 Year
  Sex: Female
  Weight: 67.5 kg

DRUGS (4)
  1. FLUCONAZOLE [Suspect]
     Active Substance: FLUCONAZOLE
     Indication: Fungal infection
     Dosage: OTHER FREQUENCY : 72 HOURS;?
     Route: 048
     Dates: start: 20220707, end: 20220713
  2. Yaz birth control [Concomitant]
  3. Nature made multi-omega 3 for her gummy vitamins [Concomitant]
  4. kirkland signature adult calcium gummies [Concomitant]

REACTIONS (3)
  - Pain [None]
  - Gallbladder disorder [None]
  - Back pain [None]

NARRATIVE: CASE EVENT DATE: 20220713
